FAERS Safety Report 14802709 (Version 5)
Quarter: 2019Q1

REPORT INFORMATION
  Report Type: Report from Study
  Country: ES (occurrence: ES)
  Receive Date: 20180424
  Receipt Date: 20190116
  Transmission Date: 20190417
  Serious: Yes (Hospitalization, Other)
  Sender: FDA-Public Use
  Company Number: ES-PFIZER INC-2018160617

PATIENT
  Age: 6 Year
  Sex: Male
  Weight: 19.7 kg

DRUGS (15)
  1. ERWINIA [Suspect]
     Active Substance: ASPARAGINASE ERWINIA CHRYSANTHEMI
     Dosage: 43800 IU, UNK
     Dates: start: 20171026, end: 20171030
  2. DEXAMETHASONE. [Suspect]
     Active Substance: DEXAMETHASONE
     Dosage: 42 MG, UNK
     Dates: start: 20171021, end: 20171026
  3. PREDNISONE. [Suspect]
     Active Substance: PREDNISONE
     Dosage: 60 MG, DAILY
  4. ETOPOSIDE. [Suspect]
     Active Substance: ETOPOSIDE
     Dosage: 365 MG, UNK
     Dates: start: 20171023, end: 20171025
  5. HYDROCORTISONE. [Suspect]
     Active Substance: HYDROCORTISONE
     Dosage: 20 MG, UNK
  6. MASTICAL D [Concomitant]
     Indication: VITAMIN SUPPLEMENTATION
     Dosage: 500 MG, 1X/DAY
     Route: 048
     Dates: start: 20171001
  7. FLUCONAZOLE. [Concomitant]
     Active Substance: FLUCONAZOLE
     Indication: PROPHYLAXIS
     Dosage: 90 MG, 1X/DAY
     Route: 048
     Dates: start: 201711
  8. CHOLECALCIFEROL [Concomitant]
     Active Substance: CHOLECALCIFEROL
     Indication: VITAMIN SUPPLEMENTATION
     Dosage: 12 DF (DROPS), 1X/DAY
     Route: 048
     Dates: start: 20171001
  9. CYTARABINE. [Suspect]
     Active Substance: CYTARABINE
     Dosage: 5800 MG, UNK
     Dates: start: 20171021, end: 20171022
  10. METHOTREXATE SODIUM. [Suspect]
     Active Substance: METHOTREXATE SODIUM
     Dosage: 12 MG, UNK
     Route: 037
  11. ZINC ACETATE [Concomitant]
     Active Substance: ZINC ACETATE
     Indication: VITAMIN SUPPLEMENTATION
     Dosage: 20 MG, DAILY
     Route: 048
     Dates: start: 20171001
  12. VINCRISTINE [Suspect]
     Active Substance: VINCRISTINE
     Dosage: 1.5 MG/M2, WEEKLY
  13. SEPTRIN [Concomitant]
     Active Substance: SULFAMETHOXAZOLE\TRIMETHOPRIM
     Indication: ANTIFUNGAL PROPHYLAXIS
     Dosage: 5 ML, BID, THREE DAYS/ WEEK
     Route: 048
     Dates: start: 201606
  14. TISAGENLECLEUCEL-T [Suspect]
     Active Substance: TISAGENLECLEUCEL
     Indication: ACUTE LYMPHOCYTIC LEUKAEMIA
     Dosage: 23 ML, 1X/DAY (EVERY DAY)
     Route: 042
     Dates: start: 20180228, end: 20180228
  15. MACROGOL [Concomitant]
     Active Substance: POLYETHYLENE GLYCOLS
     Indication: CONSTIPATION PROPHYLAXIS
     Dosage: 4 G, 1X/DAY
     Route: 048
     Dates: start: 20171001

REACTIONS (7)
  - Bacteraemia [Recovered/Resolved]
  - Streptococcal infection [Recovered/Resolved]
  - Proteus infection [Recovered/Resolved]
  - Tachycardia [Recovered/Resolved]
  - Staphylococcal bacteraemia [Recovered/Resolved]
  - Enterococcal infection [Recovered/Resolved]
  - Pyrexia [Recovering/Resolving]

NARRATIVE: CASE EVENT DATE: 20180121
